FAERS Safety Report 7517292-2 (Version None)
Quarter: 2011Q2

REPORT INFORMATION
  Report Type: 
  Country: None (occurrence: None)
  Receive Date: 20110601
  Receipt Date: 20110524
  Transmission Date: 20111010
  Serious: Yes (Other)
  Sender: FDA-Public Use
  Company Number: US-US-EMD SERONO, INC.-7061956

PATIENT
  Sex: Female

DRUGS (2)
  1. REBIF [Suspect]
     Indication: PRODUCT USED FOR UNKNOWN INDICATION
     Dates: start: 20050924, end: 20101224
  2. LEXAPRO [Concomitant]
     Indication: DEPRESSION

REACTIONS (2)
  - HAEMANGIOMA [None]
  - DEPRESSION [None]
